FAERS Safety Report 11101589 (Version 3)
Quarter: 2015Q3

REPORT INFORMATION
  Report Type: Spontaneous
  Country: US (occurrence: US)
  Receive Date: 20150508
  Receipt Date: 20150709
  Transmission Date: 20151125
  Serious: Yes (Other)
  Sender: FDA-Public Use
  Company Number: GXBR2015US001314

PATIENT
  Age: 47 Year
  Sex: Female
  Weight: 90.7 kg

DRUGS (3)
  1. SYMBICORT [Concomitant]
     Active Substance: BUDESONIDE\FORMOTEROL FUMARATE DIHYDRATE
     Indication: ASTHMA
     Dosage: 160 UG, BID2SDO
     Route: 055
     Dates: start: 2006
  2. PROVENTIL [Concomitant]
     Active Substance: ALBUTEROL
     Indication: ASTHMA
     Dosage: UNK DF, Q6H PRN
     Route: 055
     Dates: start: 1993
  3. AMOXICILLIN CAPSULES, USP [Suspect]
     Active Substance: AMOXICILLIN
     Indication: BRONCHITIS
     Dosage: UNK DF, UNK
     Route: 065
     Dates: end: 20150212

REACTIONS (12)
  - Oral herpes [Not Recovered/Not Resolved]
  - Vitamin D decreased [Unknown]
  - Burning sensation [Unknown]
  - Hypersensitivity [Not Recovered/Not Resolved]
  - Erythema [Unknown]
  - Dyspnoea [Recovering/Resolving]
  - Fatigue [Not Recovered/Not Resolved]
  - Dry skin [Unknown]
  - Rash morbilliform [Not Recovered/Not Resolved]
  - Blister [Unknown]
  - Rash generalised [Recovering/Resolving]
  - Malaise [Unknown]

NARRATIVE: CASE EVENT DATE: 201502
